FAERS Safety Report 7946472-7 (Version None)
Quarter: 2011Q4

REPORT INFORMATION
  Report Type: 
  Country: None (occurrence: None)
  Receive Date: 20111129
  Receipt Date: 20111119
  Transmission Date: 20120403
  Serious: Yes (Hospitalization, Other)
  Sender: FDA-Public Use
  Company Number: US-BAYER-201035801NA

PATIENT
  Age: 35 Year
  Sex: Female
  Weight: 71.202 kg

DRUGS (11)
  1. MUCINEX [Concomitant]
  2. CIPROFLOXACIN [Concomitant]
  3. ZITHROMAX [Concomitant]
  4. YAZ [Suspect]
     Indication: ACNE
  5. DARVOCET-N 50 [Concomitant]
  6. LEVOTHYROXINE SODIUM [Concomitant]
  7. COMBIVENT [Concomitant]
  8. CHANTIX [Concomitant]
  9. PLAQUENIL [Concomitant]
     Indication: LUPUS-LIKE SYNDROME
     Dosage: UNK
     Dates: start: 20080101
  10. SYNTHROID [Concomitant]
     Indication: HYPOTHYROIDISM
     Dosage: UNK
     Dates: start: 20030101
  11. WARFARIN SODIUM [Concomitant]
     Dosage: UNK
     Dates: start: 20070501

REACTIONS (3)
  - INJURY [None]
  - PULMONARY THROMBOSIS [None]
  - PULMONARY EMBOLISM [None]
